FAERS Safety Report 8435152-X (Version None)
Quarter: 2012Q2

REPORT INFORMATION
  Report Type: 
  Country: None (occurrence: None)
  Receive Date: 20120614
  Receipt Date: 20120606
  Transmission Date: 20120825
  Serious: Yes (Hospitalization)
  Sender: FDA-Public Use
  Company Number: US-BAYER-2012-057958

PATIENT
  Age: 22 Year
  Sex: Female
  Weight: 85.714 kg

DRUGS (16)
  1. PREGABALIN [Concomitant]
     Dosage: 75 MG, BID
     Route: 048
  2. ULTRAM [Concomitant]
     Dosage: 50 MG, UNK
     Route: 048
     Dates: start: 20090504
  3. ELAVIL [Concomitant]
  4. PERCOCET [Concomitant]
     Indication: BREAKTHROUGH PAIN
  5. VICODIN [Concomitant]
     Route: 048
  6. MOTRIN [Concomitant]
     Route: 048
  7. AMITRIPTYLINE HCL [Concomitant]
     Dosage: 10 MG, HS
     Route: 048
  8. PREDNISONE TAB [Concomitant]
     Dosage: 40 MG, UNK
     Route: 048
  9. YASMIN [Suspect]
  10. LYRICA [Concomitant]
  11. TRAMADOL HCL [Concomitant]
     Indication: PAIN
  12. YAZ [Suspect]
  13. ESOMEPRAZOLE MAGNESIUM [Concomitant]
     Dosage: 40 MG 30 MINUTES BEFORE EATING
     Route: 048
  14. FLEXERIL [Concomitant]
     Route: 048
  15. BENADRYL [Concomitant]
     Dosage: 25 MG, UNK
     Route: 048
  16. LEVOTHYROXINE SODIUM [Concomitant]
     Dosage: 50 MCG QD
     Route: 048

REACTIONS (1)
  - DEEP VEIN THROMBOSIS [None]
